FAERS Safety Report 17541242 (Version 1)
Quarter: 2020Q1

REPORT INFORMATION
  Report Type: Spontaneous
  Country: RU (occurrence: RU)
  Receive Date: 20200313
  Receipt Date: 20200313
  Transmission Date: 20200409
  Serious: Yes (Death, Hospitalization)
  Sender: FDA-Public Use
  Company Number: RU-ASTRAZENECA-2020SE31890

PATIENT
  Age: 25195 Day
  Sex: Male
  Weight: 79 kg

DRUGS (4)
  1. INFLIXIMAB [Concomitant]
     Active Substance: INFLIXIMAB
     Dates: start: 20200302
  2. IMFINZI [Suspect]
     Active Substance: DURVALUMAB
     Indication: NON-SMALL CELL LUNG CANCER
     Route: 042
     Dates: start: 20200121, end: 20200204
  3. GLUCO-CORTICOSTEROID [Concomitant]
     Dosage: 1 MG/KG AND THEN 4 MG/KG.
  4. IMFINZI [Suspect]
     Active Substance: DURVALUMAB
     Indication: NON-SMALL CELL LUNG CANCER
     Route: 042
     Dates: start: 20200211

REACTIONS (3)
  - Immune-mediated pneumonitis [Not Recovered/Not Resolved]
  - Death [Fatal]
  - Radiation pneumonitis [Not Recovered/Not Resolved]

NARRATIVE: CASE EVENT DATE: 20200308
